FAERS Safety Report 4363180-2 (Version None)
Quarter: 2004Q2

REPORT INFORMATION
  Report Type: 
  Country: None (occurrence: None)
  Receive Date: 20040524
  Receipt Date: 20031113
  Transmission Date: 20050107
  Serious: No
  Sender: FDA-Public Use
  Company Number: US-GLAXOSMITHKLINE-A0439662A

PATIENT
  Age: 60 Year
  Sex: Female

DRUGS (2)
  1. BACTROBAN [Suspect]
     Indication: ILL-DEFINED DISORDER
     Dosage: 1APP UNKNOWN
     Route: 061
  2. COMBIVENT MDI [Concomitant]

REACTIONS (2)
  - BURNING SENSATION [None]
  - PHARMACEUTICAL PRODUCT COMPLAINT [None]
